FAERS Safety Report 10424241 (Version 2)
Quarter: 2014Q4

REPORT INFORMATION
  Report Type: Spontaneous
  Country: US (occurrence: US)
  Receive Date: 20140902
  Receipt Date: 20141114
  Transmission Date: 20150528
  Serious: No
  Sender: FDA-Public Use
  Company Number: US-PFIZER INC-2014239670

PATIENT
  Age: 65 Year
  Sex: Female
  Weight: 61.22 kg

DRUGS (9)
  1. EFFEXOR [Suspect]
     Active Substance: VENLAFAXINE HYDROCHLORIDE
     Indication: DEPRESSION
     Dosage: UNK
     Dates: start: 20120805, end: 201208
  2. JAKAFI [Suspect]
     Active Substance: RUXOLITINIB
     Indication: MYELOFIBROSIS
     Dosage: 15 MG, 2X/DAY
     Route: 048
     Dates: start: 20120407, end: 2012
  3. JAKAFI [Suspect]
     Active Substance: RUXOLITINIB
     Dosage: 20 MG, 2X/DAY
     Route: 048
     Dates: start: 2012, end: 2012
  4. PAXIL [Concomitant]
     Active Substance: PAROXETINE HYDROCHLORIDE
     Dosage: 80 MG, UNK
     Dates: start: 2002
  5. CELEXA [Concomitant]
     Active Substance: CITALOPRAM HYDROBROMIDE
     Dosage: UNK
     Dates: start: 20120805, end: 201208
  6. JAKAFI [Suspect]
     Active Substance: RUXOLITINIB
     Dosage: 15 MG, 2X/DAY
     Route: 048
     Dates: start: 20120822
  7. CELEXA [Concomitant]
     Active Substance: CITALOPRAM HYDROBROMIDE
     Dosage: 40 MG, UNK
     Dates: start: 20120831
  8. JAKAFI [Suspect]
     Active Substance: RUXOLITINIB
     Dosage: UNK
     Route: 048
     Dates: start: 2012
  9. CELEXA [Concomitant]
     Active Substance: CITALOPRAM HYDROBROMIDE
     Indication: DEPRESSION
     Dosage: UNK
     Dates: start: 2007

REACTIONS (7)
  - Arthralgia [Recovered/Resolved]
  - Confusional state [Unknown]
  - Mood swings [Unknown]
  - Bone pain [Recovered/Resolved]
  - Depression [Recovered/Resolved]
  - Drug dose omission [Unknown]
  - Arthritis [Unknown]

NARRATIVE: CASE EVENT DATE: 2012
